FAERS Safety Report 13350107 (Version 2)
Quarter: 2017Q4

REPORT INFORMATION
  Report Type: Spontaneous
  Country: US (occurrence: US)
  Receive Date: 20170320
  Receipt Date: 20171125
  Transmission Date: 20180320
  Serious: Yes (Death, Hospitalization)
  Sender: FDA-Public Use
  Company Number: US-B.I. PHARMACEUTICALS,INC./RIDGEFIELD-2017-BI-015601

PATIENT

DRUGS (1)
  1. PRADAXA [Suspect]
     Active Substance: DABIGATRAN ETEXILATE MESYLATE
     Indication: ATRIAL FIBRILLATION
     Dosage: THERAPY START DATE: 12-MAR-2013
     Route: 065

REACTIONS (11)
  - Anaemia [Fatal]
  - Thrombocytopenia [Unknown]
  - Thrombocytopenia [Unknown]
  - Thrombocytopenia [Unknown]
  - Anaemia [Fatal]
  - Anaemia [Unknown]
  - Anaemia [Unknown]
  - Thrombocytopenia [Fatal]
  - Anaemia [Unknown]
  - Thrombocytopenia [Unknown]
  - Septic shock [Fatal]

NARRATIVE: CASE EVENT DATE: 201303
